FAERS Safety Report 9861412 (Version 1)
Quarter: 2014Q1

REPORT INFORMATION
  Report Type: Report from Study
  Country: FR (occurrence: FR)
  Receive Date: 20140203
  Receipt Date: 20140203
  Transmission Date: 20141002
  Serious: Yes (Other)
  Sender: FDA-Public Use
  Company Number: FR-ROCHE-1340745

PATIENT
  Age: 59 Year
  Sex: Female
  Weight: 82 kg

DRUGS (7)
  1. TOCILIZUMAB [Suspect]
     Indication: RHEUMATOID ARTHRITIS
     Route: 042
     Dates: start: 20130531, end: 20131025
  2. LEFLUNOMIDE [Concomitant]
     Route: 065
     Dates: start: 2011, end: 20131112
  3. PREDNISONE [Concomitant]
     Route: 065
     Dates: start: 1996
  4. RISEDRONATE [Concomitant]
     Route: 065
     Dates: start: 2000
  5. VITAMIN D3 [Concomitant]
     Route: 065
     Dates: start: 2000
  6. POTASSIUM CHLORIDE [Concomitant]
     Route: 065
     Dates: start: 2000
  7. GINKGO BILOBA [Concomitant]
     Route: 065
     Dates: start: 1995

REACTIONS (3)
  - CD8 lymphocytes increased [Unknown]
  - Neutropenia [Unknown]
  - Felty^s syndrome [Unknown]
